FAERS Safety Report 5168253-2 (Version None)
Quarter: 2006Q4

REPORT INFORMATION
  Report Type: 
  Country: None (occurrence: None)
  Receive Date: 20061130
  Receipt Date: 20061122
  Transmission Date: 20070319
  Serious: Yes (Death, Hospitalization, Other)
  Sender: FDA-Public Use
  Company Number: 163-21880-06101263

PATIENT
  Age: 90 Year
  Sex: Male

DRUGS (13)
  1. REVLIMID [Suspect]
     Indication: MULTIPLE MYELOMA
     Dosage: 25 MG, DAILY, ORAL
     Route: 048
     Dates: start: 20060918, end: 20061001
  2. DECADRON [Suspect]
     Indication: DRUG USE FOR UNKNOWN INDICATION
     Dates: start: 20060918
  3. MAGNESIUM CITRATE [Concomitant]
  4. NORVASC [Concomitant]
  5. IMDUR [Concomitant]
  6. FLOMAX [Concomitant]
  7. LASIX [Concomitant]
  8. ASPIRIN [Concomitant]
  9. HYDRALAZINE HCL [Concomitant]
  10. LOVENOX [Concomitant]
  11. NEXIUM [Concomitant]
  12. POTASSIUM ACETATE [Concomitant]
  13. ARANESP [Concomitant]

REACTIONS (8)
  - ACUTE MYOCARDIAL INFARCTION [None]
  - ARTERIOSCLEROSIS [None]
  - ATRIAL FIBRILLATION [None]
  - CARDIAC FAILURE CONGESTIVE [None]
  - COUGH [None]
  - DRUG INEFFECTIVE [None]
  - ORAL INTAKE REDUCED [None]
  - VENOUS THROMBOSIS [None]
